FAERS Safety Report 15719397 (Version 1)
Quarter: 2018Q4

REPORT INFORMATION
  Report Type: Spontaneous
  Country: JP (occurrence: JP)
  Receive Date: 20181213
  Receipt Date: 20181213
  Transmission Date: 20190205
  Serious: Yes (Hospitalization)
  Sender: FDA-Public Use
  Company Number: PHHY2018JP183563

PATIENT
  Age: 44 Year
  Sex: Female

DRUGS (1)
  1. IMUSERA [Suspect]
     Active Substance: FINGOLIMOD HYDROCHLORIDE
     Indication: MULTIPLE SCLEROSIS
     Route: 048

REACTIONS (5)
  - Rebound effect [Recovered/Resolved]
  - Visual impairment [Recovered/Resolved]
  - White blood cell count decreased [Unknown]
  - Psychiatric symptom [Recovered/Resolved]
  - Lymphocyte count decreased [Unknown]
